FAERS Safety Report 15205791 (Version 1)
Quarter: 2018Q3

REPORT INFORMATION
  Report Type: Report from Study
  Country: None (occurrence: MX)
  Receive Date: 20180727
  Receipt Date: 20180727
  Transmission Date: 20181010
  Serious: Yes (Life-Threatening, Hospitalization)
  Sender: FDA-Public Use
  Company Number: MX-ABBVIE-18K-107-2432614-00

PATIENT
  Age: 85 Year
  Sex: Male
  Weight: 103 kg

DRUGS (1)
  1. VENCLEXTA [Suspect]
     Active Substance: VENETOCLAX
     Indication: CHRONIC LYMPHOCYTIC LEUKAEMIA
     Route: 048
     Dates: start: 20170423, end: 20180720

REACTIONS (1)
  - Pneumonia influenzal [Unknown]

NARRATIVE: CASE EVENT DATE: 20180720
